FAERS Safety Report 12361839 (Version 2)
Quarter: 2016Q3

REPORT INFORMATION
  Report Type: Spontaneous
  Country: US (occurrence: US)
  Receive Date: 20160512
  Receipt Date: 20160809
  Transmission Date: 20161109
  Serious: No
  Sender: FDA-Public Use
  Company Number: US-SA-2016SA066186

PATIENT
  Sex: Female

DRUGS (2)
  1. PRALUENT [Suspect]
     Active Substance: ALIROCUMAB
     Route: 065
  2. ALIROCUMAB PREFILLED PEN [Suspect]
     Active Substance: ALIROCUMAB

REACTIONS (6)
  - Wrong technique in product usage process [Unknown]
  - Tinnitus [Unknown]
  - Dizziness [Unknown]
  - Hypersensitivity [Unknown]
  - Sinus headache [Unknown]
  - Injection site erythema [Unknown]

NARRATIVE: CASE EVENT DATE: 20160330
